FAERS Safety Report 4960496-3 (Version None)
Quarter: 2006Q2

REPORT INFORMATION
  Report Type: 
  Country: None (occurrence: None)
  Receive Date: 20060403
  Receipt Date: 20060324
  Transmission Date: 20061013
  Serious: Yes (Death, Hospitalization)
  Sender: FDA-Public Use
  Company Number: US-JNJFOC-20060106082

PATIENT
  Sex: Female
  Weight: 45.36 kg

DRUGS (2)
  1. FENTANYL [Suspect]
     Indication: CANCER PAIN
     Route: 062
  2. MORPHINE [Concomitant]
     Indication: CANCER PAIN
     Route: 042

REACTIONS (2)
  - CARDIAC FAILURE [None]
  - METASTATIC MALIGNANT MELANOMA [None]
